FAERS Safety Report 20840982 (Version 1)
Quarter: 2022Q2

REPORT INFORMATION
  Report Type: Spontaneous
  Country: US (occurrence: None)
  Receive Date: 20220517
  Receipt Date: 20220517
  Transmission Date: 20220720
  Serious: No
  Sender: FDA-Public Use
  Company Number: None

PATIENT
  Age: 66 Year
  Sex: Male
  Weight: 95.71 kg

DRUGS (1)
  1. GAMMAGARD [Suspect]
     Active Substance: HUMAN IMMUNOGLOBULIN G
     Indication: Multifocal motor neuropathy
     Dosage: FREQUENCY : AS DIRECTED;?
     Route: 042
     Dates: start: 20220423, end: 20220427

REACTIONS (3)
  - Pyrexia [None]
  - Transaminases increased [None]
  - Troponin increased [None]

NARRATIVE: CASE EVENT DATE: 20220516
